FAERS Safety Report 5216222-6 (Version None)
Quarter: 2006Q4

REPORT INFORMATION
  Report Type: 
  Country: None (occurrence: None)
  Receive Date: 20061122
  Receipt Date: 20060913
  Transmission Date: 20070319
  Serious: Yes (Other)
  Sender: FDA-Public Use
  Company Number: 2006111223

PATIENT
  Age: 50 Year
  Sex: Male
  Weight: 69.4003 kg

DRUGS (6)
  1. LIPITOR [Suspect]
     Indication: INFLAMMATION
     Dosage: 80 MG (80 MG, 1 IN 1 D)
     Dates: start: 20060324
  2. FISH OIL (FISH OIL) [Concomitant]
  3. CO-Q-10 (UBIDECARENONE) [Concomitant]
  4. LISINOPRIL [Concomitant]
  5. TOPROL-XL [Concomitant]
  6. ASPIRIN [Concomitant]

REACTIONS (5)
  - ALANINE AMINOTRANSFERASE INCREASED [None]
  - ASTHENIA [None]
  - CHEST PAIN [None]
  - MALAISE [None]
  - MUSCULAR WEAKNESS [None]
